FAERS Safety Report 23331307 (Version 2)
Quarter: 2024Q3

REPORT INFORMATION
  Report Type: Spontaneous
  Country: FR (occurrence: FR)
  Receive Date: 20231222
  Receipt Date: 20240828
  Transmission Date: 20241017
  Serious: Yes (Life-Threatening, Other)
  Sender: PFIZER
  Company Number: FR-PFIZER INC-PV202300204599

PATIENT
  Age: 56 Year
  Sex: Male
  Weight: 69 kg

DRUGS (2)
  1. FLUCONAZOLE [Suspect]
     Active Substance: FLUCONAZOLE
     Indication: Candida infection
     Dosage: 400 MG PER DAY
     Route: 048
  2. FLUCYTOSINE [Suspect]
     Active Substance: FLUCYTOSINE
     Indication: Candida infection
     Dosage: 3 G PER DAY
     Route: 048

REACTIONS (4)
  - Toxicity to various agents [Unknown]
  - Ventricular tachycardia [Unknown]
  - Cardiac arrest [Recovered/Resolved]
  - Off label use [Unknown]
